FAERS Safety Report 20377371 (Version 2)
Quarter: 2022Q1

REPORT INFORMATION
  Report Type: Report from Study
  Country: US (occurrence: US)
  Receive Date: 20220126
  Receipt Date: 20220316
  Transmission Date: 20220423
  Serious: Yes (Hospitalization)
  Sender: FDA-Public Use
  Company Number: US-ABBVIE-22K-163-4248050-00

PATIENT
  Sex: Female

DRUGS (1)
  1. HUMIRA [Suspect]
     Active Substance: ADALIMUMAB
     Indication: Iridocyclitis
     Route: 058
     Dates: start: 202101

REACTIONS (4)
  - Pneumonia [Unknown]
  - Abdominal pain [Unknown]
  - Constipation [Unknown]
  - Weight decreased [Unknown]
